FAERS Safety Report 10082991 (Version 1)
Quarter: 2014Q2

REPORT INFORMATION
  Report Type: Spontaneous
  Country: GB (occurrence: GB)
  Receive Date: 20140417
  Receipt Date: 20140417
  Transmission Date: 20141212
  Serious: Yes (Hospitalization)
  Sender: FDA-Public Use
  Company Number: GB-DRREDDYS-GER/UKI/14/0039700

PATIENT
  Age: 76 Year
  Sex: Male
  Weight: 105.8 kg

DRUGS (2)
  1. OMEPRAZOLE [Suspect]
     Indication: DUODENITIS
     Dates: start: 20071127, end: 20130117
  2. RAMIPRIL [Concomitant]
     Indication: ESSENTIAL HYPERTENSION
     Dates: start: 20111017, end: 20130117

REACTIONS (2)
  - Blood magnesium decreased [Recovered/Resolved]
  - Blood calcium decreased [Recovered/Resolved]
